FAERS Safety Report 15822621 (Version 1)
Quarter: 2019Q1

REPORT INFORMATION
  Report Type: Report from Study
  Country: US (occurrence: US)
  Receive Date: 20190114
  Receipt Date: 20190114
  Transmission Date: 20190417
  Serious: Yes (Disabling)
  Sender: FDA-Public Use
  Company Number: US-SA-2019SA007924

PATIENT
  Age: 66 Year
  Sex: Male

DRUGS (1)
  1. INSULIN GLARGINE [Suspect]
     Active Substance: INSULIN GLARGINE
     Indication: DIABETES MELLITUS
     Dosage: 65 U, QD
     Route: 058

REACTIONS (2)
  - Disability [Unknown]
  - Unevaluable event [Unknown]

NARRATIVE: CASE EVENT DATE: 2009
